FAERS Safety Report 7832906-5 (Version None)
Quarter: 2011Q4

REPORT INFORMATION
  Report Type: 
  Country: None (occurrence: None)
  Receive Date: 20111019
  Receipt Date: 20111004
  Transmission Date: 20120403
  Serious: Yes (Life-Threatening, Hospitalization)
  Sender: FDA-Public Use
  Company Number: 2011HGS-002547

PATIENT
  Age: 26 Year
  Sex: Female
  Weight: 122 kg

DRUGS (5)
  1. PREDNISONE [Concomitant]
  2. BENLYSTA [Suspect]
     Indication: SYSTEMIC LUPUS ERYTHEMATOSUS
     Dosage: 1 IN 2 WK, INTRAVENOUS DRIP
     Route: 041
     Dates: start: 20110829, end: 20110912
  3. PLAQUENIL (HYDROXYCHLOROQUINE SULFATE) (HYDROXYCHLOROQUINE SULFATE) [Concomitant]
  4. PRILOSEC (OMEPRAZOLE) (OMEPRAZOLE) [Concomitant]
  5. TYLENOL (PARACETAMOL) (PARACETAMOL) [Concomitant]

REACTIONS (11)
  - LIVEDO RETICULARIS [None]
  - CONDITION AGGRAVATED [None]
  - NEUTROPENIA [None]
  - MALAISE [None]
  - LEUKOPENIA [None]
  - HEADACHE [None]
  - NAUSEA [None]
  - VOMITING [None]
  - RASH [None]
  - PYREXIA [None]
  - FEELING ABNORMAL [None]
